FAERS Safety Report 4759072-7 (Version None)
Quarter: 2005Q3

REPORT INFORMATION
  Report Type: 
  Country: None (occurrence: None)
  Receive Date: 20050826
  Receipt Date: 20050810
  Transmission Date: 20060218
  Serious: Yes (Other)
  Sender: FDA-Public Use
  Company Number: PHBS2005US11688

PATIENT
  Age: 88 Year
  Sex: Female

DRUGS (2)
  1. VISUDYNE [Suspect]
     Indication: MACULAR DEGENERATION
  2. TRIAMCINOLONE ACETONIDE [Suspect]

REACTIONS (5)
  - ARTERIAL OCCLUSIVE DISEASE [None]
  - BLINDNESS [None]
  - CHOROIDAL INFARCTION [None]
  - EYE DISORDER [None]
  - HYPOPERFUSION [None]
